FAERS Safety Report 8951148 (Version 2)
Quarter: 2013Q1

REPORT INFORMATION
  Report Type: Spontaneous
  Country: BR (occurrence: BR)
  Receive Date: 20121207
  Receipt Date: 20130108
  Transmission Date: 20140127
  Serious: Yes (Other)
  Sender: FDA-Public Use
  Company Number: PHHY2012BR110053

PATIENT
  Sex: Female
  Weight: 92 kg

DRUGS (4)
  1. DIOVAN HCT [Suspect]
     Indication: HYPERTENSION
     Dosage: 2 DF (160/25 MG), DAILY
     Route: 048
  2. FORASEQ [Suspect]
     Indication: DYSPNOEA
     Dosage: 1 DF, BID
  3. GLICAMIN//GLIBENCLAMIDE [Concomitant]
     Indication: DIABETES MELLITUS
     Dosage: 15 MG, DAILY
     Route: 048
  4. SOMALGIN [Concomitant]
     Indication: ANTICOAGULANT THERAPY
     Dosage: 2 DF, DAILY
     Route: 048

REACTIONS (6)
  - Cerebrovascular accident [Recovered/Resolved]
  - Tremor [Not Recovered/Not Resolved]
  - Headache [Not Recovered/Not Resolved]
  - Blood pressure increased [Recovered/Resolved]
  - Feeling of despair [Unknown]
  - Bone pain [Not Recovered/Not Resolved]
